FAERS Safety Report 20936426 (Version 1)
Quarter: 2022Q2

REPORT INFORMATION
  Report Type: Spontaneous
  Country: US (occurrence: US)
  Receive Date: 20220609
  Receipt Date: 20220609
  Transmission Date: 20220721
  Serious: No
  Sender: FDA-Public Use
  Company Number: US-BRISTOL-MYERS SQUIBB COMPANY-2022-049324

PATIENT
  Age: 94 Year
  Sex: Female

DRUGS (4)
  1. ELIQUIS [Suspect]
     Active Substance: APIXABAN
     Indication: Cerebrovascular accident prophylaxis
     Dosage: DOSE : UNAVAILABLE;     FREQ : TWICE A DAY
     Route: 048
  2. CARVEDILOL [Concomitant]
     Active Substance: CARVEDILOL
     Indication: Product used for unknown indication
     Dosage: DOSE AT ONLY NIGHT.
     Route: 065
  3. AMLODIPINE BESYLATE\BENAZEPRIL HYDROCHLORIDE [Concomitant]
     Active Substance: AMLODIPINE BESYLATE\BENAZEPRIL HYDROCHLORIDE
     Indication: Product used for unknown indication
     Dosage: 5-20MG EVERY MORNING
     Route: 065
  4. AMLODIPINE BESYLATE [Concomitant]
     Indication: Product used for unknown indication
     Dosage: DOSE AT EVERY NIGHT
     Route: 065

REACTIONS (6)
  - Hypertension [Unknown]
  - Swelling [Unknown]
  - Dizziness [Unknown]
  - Feeling abnormal [Unknown]
  - Fall [Unknown]
  - Swelling face [Unknown]
